FAERS Safety Report 6649495-3 (Version None)
Quarter: 2010Q1

REPORT INFORMATION
  Report Type: 
  Country: None (occurrence: None)
  Receive Date: 20100324
  Receipt Date: 20100324
  Transmission Date: 20100710
  Serious: Yes (Hospitalization, Other)
  Sender: FDA-Public Use
  Company Number: None

PATIENT
  Age: 59 Year
  Sex: Female
  Weight: 92.9874 kg

DRUGS (4)
  1. GENTAMICIN [Suspect]
     Indication: INFECTION
     Dosage: 2MI SINGLE DOSE 1/2 FOR12 DAYS OTHER
     Dates: start: 20090110, end: 20090206
  2. GENTAMICIN [Suspect]
     Indication: PROCEDURAL COMPLICATION
     Dosage: 2MI SINGLE DOSE 1/2 FOR12 DAYS OTHER
     Dates: start: 20090110, end: 20090206
  3. GENTAMICIN [Suspect]
     Indication: INFECTION
     Dosage: 2MI SINGLE DOSE 1/2 FOR12 DAYS OTHER
     Dates: start: 20090122, end: 20090218
  4. GENTAMICIN [Suspect]
     Indication: PROCEDURAL COMPLICATION
     Dosage: 2MI SINGLE DOSE 1/2 FOR12 DAYS OTHER
     Dates: start: 20090122, end: 20090218

REACTIONS (7)
  - BALANCE DISORDER [None]
  - DIZZINESS [None]
  - DRUG INEFFECTIVE [None]
  - GAIT DISTURBANCE [None]
  - IMPAIRED WORK ABILITY [None]
  - VISION BLURRED [None]
  - WHEELCHAIR USER [None]
